FAERS Safety Report 8092517-6 (Version None)
Quarter: 2012Q1

REPORT INFORMATION
  Report Type: 
  Country: None (occurrence: None)
  Receive Date: 20120128
  Receipt Date: 20110827
  Transmission Date: 20120608
  Serious: No
  Sender: FDA-Public Use
  Company Number: US-ABBOTT-11P-163-0849817-00

PATIENT
  Age: 54 Year
  Sex: Female

DRUGS (28)
  1. HYDROCODONE BITARTRATE [Concomitant]
     Indication: PAIN
  2. NORCO [Concomitant]
     Indication: BREAKTHROUGH PAIN
     Dosage: 5/25
  3. TOPAMAX [Concomitant]
     Indication: MIGRAINE
     Dosage: 1-1/2 TABLETS
  4. POTASSIUM [Concomitant]
     Indication: MINERAL SUPPLEMENTATION
  5. ONDANSETRON HCL [Concomitant]
     Indication: VOMITING
  6. DICYCLOMINE [Concomitant]
     Indication: PRODUCT USED FOR UNKNOWN INDICATION
     Dosage: 1 BEFORE MEALS AND BEDTIME
  7. NEURONTIN [Concomitant]
     Indication: PRODUCT USED FOR UNKNOWN INDICATION
  8. RIBOFLAVIN [Concomitant]
     Indication: MIGRAINE
  9. NEXIUM [Concomitant]
     Indication: GASTROOESOPHAGEAL REFLUX DISEASE
  10. TORSEMIDE [Concomitant]
     Indication: PRODUCT USED FOR UNKNOWN INDICATION
  11. EVOXAC [Concomitant]
     Indication: LACRIMATION DECREASED
  12. ADVAIR DISKUS 100/50 [Concomitant]
     Indication: ASTHMA
     Dosage: 250/50
  13. HYDROCHLOROTHIAZIDE [Concomitant]
     Indication: PRODUCT USED FOR UNKNOWN INDICATION
  14. FEXOFENADINE [Concomitant]
     Indication: HYPERSENSITIVITY
  15. PREDNISONE TAB [Concomitant]
     Indication: RHEUMATOID ARTHRITIS
  16. ONDANSETRON HCL [Concomitant]
     Indication: NAUSEA
  17. RESTASIS [Concomitant]
     Indication: LACRIMAL DISORDER
     Dosage: EYE GTTS
  18. ASPIRIN [Concomitant]
     Indication: PRODUCT USED FOR UNKNOWN INDICATION
     Dosage: DAILY
  19. VITAMIN D [Concomitant]
     Indication: PRODUCT USED FOR UNKNOWN INDICATION
     Dosage: DAILY
  20. FLEXERIL [Concomitant]
     Indication: MUSCLE RELAXANT THERAPY
  21. FLUTICASONE PROPIONATE [Concomitant]
     Indication: PRODUCT USED FOR UNKNOWN INDICATION
     Route: 045
  22. NEBULIZER [Concomitant]
     Indication: ASTHMA
  23. PROAIR HFA [Concomitant]
     Indication: ASTHMA
     Dosage: 4 TIMES A DAY AS NEEDED
     Route: 055
  24. DILTIAZEM HCL [Concomitant]
     Indication: PRODUCT USED FOR UNKNOWN INDICATION
  25. HUMIRA [Suspect]
     Indication: RHEUMATOID ARTHRITIS
     Dates: start: 20060101, end: 20110501
  26. OPANA [Concomitant]
     Indication: PAIN
  27. TRAZODONE HCL [Concomitant]
     Indication: INSOMNIA
     Dosage: AT HOUR OF SLEEP
  28. SERTRALINE HYDROCHLORIDE [Concomitant]
     Indication: MIGRAINE

REACTIONS (2)
  - BONE DISORDER [None]
  - PAIN IN EXTREMITY [None]
